FAERS Safety Report 9237204 (Version 2)
Quarter: 2013Q2

REPORT INFORMATION
  Report Type: Report from Study
  Country: US (occurrence: US)
  Receive Date: 20130417
  Receipt Date: 20130426
  Transmission Date: 20140414
  Serious: Yes (Hospitalization, Other)
  Sender: FDA-Public Use
  Company Number: US-ASTRAZENECA-2013SE23268

PATIENT
  Sex: Male

DRUGS (3)
  1. VANDETANIB [Suspect]
     Indication: GASTROOESOPHAGEAL CANCER
     Route: 048
  2. DOCETAXEL [Suspect]
     Indication: GASTROOESOPHAGEAL CANCER
     Dosage: 35 MG/M2 OVER 1 HOUR ON DAYS 1 AND 8 OF 21-DAY TREATMENT CYCLES
     Route: 042
  3. OXALIPLATIN [Suspect]
     Indication: GASTROOESOPHAGEAL CANCER
     Dosage: 100 MG/M2 OVER 2 HOURS ON DAY 1 OF 21-DAY TREATMENT CYCLES
     Route: 042

REACTIONS (3)
  - Diarrhoea [Unknown]
  - Dehydration [Unknown]
  - Hypotension [Unknown]
